FAERS Safety Report 26119620 (Version 1)
Quarter: 2025Q4

REPORT INFORMATION
  Report Type: Spontaneous
  Country: US (occurrence: US)
  Receive Date: 20251204
  Receipt Date: 20251204
  Transmission Date: 20260118
  Serious: No
  Sender: ROCHE
  Company Number: US-ROCHE-10000446475

PATIENT
  Sex: Male

DRUGS (3)
  1. HEMLIBRA [Suspect]
     Active Substance: EMICIZUMAB-KXWH
     Indication: Factor VIII deficiency
     Route: 058
     Dates: start: 202504
  2. ELOCTATE [Concomitant]
     Active Substance: EFMOROCTOCOG ALFA
  3. JIVI [Concomitant]
     Active Substance: DAMOCTOCOG ALFA PEGOL

REACTIONS (1)
  - Intervertebral disc protrusion [Unknown]
